FAERS Safety Report 24800707 (Version 2)
Quarter: 2025Q1

REPORT INFORMATION
  Report Type: Spontaneous
  Country: US (occurrence: US)
  Receive Date: 20250102
  Receipt Date: 20250127
  Transmission Date: 20250409
  Serious: Yes (Other)
  Sender: BAYER HEALTHCARE PHARMACEUTICALS INC.
  Company Number: US-BAYER-2024A183697

PATIENT
  Age: 41 Year
  Sex: Female

DRUGS (1)
  1. MIRENA [Suspect]
     Active Substance: LEVONORGESTREL
     Dosage: 20?G/DAY
     Route: 015
     Dates: start: 2007, end: 2007

REACTIONS (7)
  - Intra-uterine contraceptive device removal [None]
  - Device physical property issue [None]
  - Dyspareunia [None]
  - Device dislocation [None]
  - Procedural pain [None]
  - Contraindicated device used [None]
  - Medical device monitoring error [None]

NARRATIVE: CASE EVENT DATE: 20070101
